FAERS Safety Report 7974582-7 (Version None)
Quarter: 2011Q4

REPORT INFORMATION
  Report Type: 
  Country: None (occurrence: None)
  Receive Date: 20111213
  Receipt Date: 20111201
  Transmission Date: 20120403
  Serious: Yes (Other)
  Sender: FDA-Public Use
  Company Number: US-BAYER-2011-053104

PATIENT
  Age: 18 Year
  Sex: Female
  Weight: 118 kg

DRUGS (8)
  1. YAZ [Suspect]
     Indication: ACNE
     Dosage: UNK
     Dates: start: 20060101, end: 20090101
  2. YAZ [Suspect]
     Indication: BRAIN NEOPLASM
  3. ALBUTEROL INHALER [Concomitant]
  4. GABAPENTIN [Concomitant]
  5. IBUPROFEN [Concomitant]
     Indication: HEADACHE
     Dosage: 200 MG
  6. CABLERONE [Concomitant]
     Indication: BRAIN NEOPLASM
     Dosage: UNK
     Dates: start: 20060101
  7. LIPITOR [Concomitant]
  8. ANTIBIOTICS [Concomitant]

REACTIONS (5)
  - PAIN [None]
  - CHOLECYSTITIS CHRONIC [None]
  - GALLBLADDER DISORDER [None]
  - INJURY [None]
  - BILIARY COLIC [None]
